FAERS Safety Report 8446342-4 (Version None)
Quarter: 2012Q2

REPORT INFORMATION
  Report Type: 
  Country: None (occurrence: None)
  Receive Date: 20120618
  Receipt Date: 20120608
  Transmission Date: 20120825
  Serious: Yes (Other)
  Sender: FDA-Public Use
  Company Number: CA-FRI-1000027141

PATIENT
  Age: 26 Year
  Sex: Female

DRUGS (5)
  1. MIRTAZAPINE [Suspect]
     Indication: ANXIETY
  2. MIRTAZAPINE [Suspect]
     Indication: SLEEP DISORDER
  3. BIRTH CONTROL PILL [Concomitant]
  4. ESCITALOPRAM [Suspect]
     Indication: ANXIETY
     Route: 048
     Dates: start: 20110625
  5. ESCITALOPRAM [Suspect]
     Indication: SLEEP DISORDER

REACTIONS (4)
  - SKIN BURNING SENSATION [None]
  - PERIPHERAL COLDNESS [None]
  - NERVOUSNESS [None]
  - PRURITUS [None]
